FAERS Safety Report 25044428 (Version 2)
Quarter: 2025Q3

REPORT INFORMATION
  Report Type: Spontaneous
  Country: JP (occurrence: JP)
  Receive Date: 20250306
  Receipt Date: 20250810
  Transmission Date: 20251021
  Serious: Yes (Hospitalization, Other)
  Sender: ALEXION PHARMACEUTICALS
  Company Number: JP-ASTRAZENECA-250019466_064320_P_1

PATIENT
  Age: 92 Year
  Sex: Male
  Weight: 54 kg

DRUGS (8)
  1. ANDEXXA [Suspect]
     Active Substance: ANDEXANET ALFA
     Indication: Putamen haemorrhage
     Dates: start: 20241213, end: 20241213
  2. BISOPROLOL [Concomitant]
     Active Substance: BISOPROLOL
  3. EDOXABAN TOSYLATE [Concomitant]
     Active Substance: EDOXABAN TOSYLATE
     Indication: Atrial fibrillation
  4. EDOXABAN TOSYLATE [Concomitant]
     Active Substance: EDOXABAN TOSYLATE
  5. NICORANDIL [Concomitant]
     Active Substance: NICORANDIL
  6. NICORANDIL [Concomitant]
     Active Substance: NICORANDIL
  7. VERAPAMIL HYDROCHLORIDE [Concomitant]
     Active Substance: VERAPAMIL HYDROCHLORIDE
  8. VERAPAMIL HYDROCHLORIDE [Concomitant]
     Active Substance: VERAPAMIL HYDROCHLORIDE

REACTIONS (1)
  - Embolic cerebral infarction [Recovering/Resolving]

NARRATIVE: CASE EVENT DATE: 20241213
